FAERS Safety Report 22655595 (Version 3)
Quarter: 2023Q4

REPORT INFORMATION
  Report Type: Spontaneous
  Country: GR (occurrence: GR)
  Receive Date: 20230629
  Receipt Date: 20231123
  Transmission Date: 20240110
  Serious: Yes (Hospitalization)
  Sender: FDA-Public Use
  Company Number: GR-ROCHE-3370529

PATIENT
  Age: 70 Year
  Sex: Female

DRUGS (11)
  1. DOXORUBICIN HYDROCHLORIDE [Suspect]
     Active Substance: DOXORUBICIN HYDROCHLORIDE
     Indication: High-grade B-cell lymphoma
     Dosage: ON 04MAY2023, PRIOR TO THE ONSET OF THE EVENT, THE PATIENT RECEIVED THE MOST RECENT DOSE OF 80 MG
     Route: 042
     Dates: start: 20230208, end: 20230504
  2. CYCLOPHOSPHAMIDE [Suspect]
     Active Substance: CYCLOPHOSPHAMIDE
     Indication: High-grade B-cell lymphoma
     Dosage: ON 04MAY2023, PRIOR TO THE ONSET OF THE EVENT, THE PATIENT RECEIVED THE MOST RECENT DOSE OF 1200 MG
     Route: 042
     Dates: start: 20230208, end: 20230504
  3. PREDNISONE [Suspect]
     Active Substance: PREDNISONE
     Indication: High-grade B-cell lymphoma
     Dosage: ON 08MAY2023, PRIOR TO THE ONSET OF THE EVENT, THE PATIENT RECEIVED THE MOST RECENT DOSE
     Route: 048
     Dates: start: 20230208, end: 20230508
  4. RITUXIMAB [Suspect]
     Active Substance: RITUXIMAB
     Indication: High-grade B-cell lymphoma
     Dosage: ON 02MAR2023, THE PATIENT^S IV DRIP OF RITUXIMAB WAS SWITCHED TO SUBCUTANEOUS (1400 MG)
     Route: 042
     Dates: start: 20230208, end: 20230504
  5. HYALURONIDASE (HUMAN RECOMBINANT)\RITUXIMAB [Suspect]
     Active Substance: HYALURONIDASE (HUMAN RECOMBINANT)\RITUXIMAB
     Indication: High-grade B-cell lymphoma
     Dosage: ON 04MAY2023, PRIOR TO THE ONSET OF THE EVENT, THE PATIENT RECEIVED THE MOST RECENT DOSE OF 1400 MG
     Route: 058
     Dates: start: 20230504, end: 20230504
  6. VINCRISTINE [Suspect]
     Active Substance: VINCRISTINE
     Indication: High-grade B-cell lymphoma
     Dosage: ON 04MAY2023, PRIOR TO THE ONSET OF THE EVENT, THE PATIENT RECEIVED THE MOST RECENT DOSE
     Route: 042
     Dates: start: 20230208, end: 20230504
  7. ENTECAVIR [Concomitant]
     Active Substance: ENTECAVIR
     Indication: Hepatitis B
     Dosage: FREQ:24 H
     Dates: start: 20230131
  8. ALLOPURINOL [Concomitant]
     Active Substance: ALLOPURINOL
     Dosage: 300 MG, 1X/DAY
     Dates: start: 20230131
  9. LEVOTHYROXINE [Concomitant]
     Active Substance: LEVOTHYROXINE
     Indication: Hypothyroidism
     Dosage: FREQ:24 H
  10. LEVOTHYROXINE SODIUM [Concomitant]
     Active Substance: LEVOTHYROXINE SODIUM
     Dosage: 0.11 MG
  11. ALLOPURINOL [Concomitant]
     Active Substance: ALLOPURINOL
     Dosage: UNK

REACTIONS (1)
  - Febrile neutropenia [Recovering/Resolving]

NARRATIVE: CASE EVENT DATE: 20230603
